FAERS Safety Report 13051292 (Version 1)
Quarter: 2016Q4

REPORT INFORMATION
  Report Type: Spontaneous
  Country: JP (occurrence: JP)
  Receive Date: 20161221
  Receipt Date: 20161221
  Transmission Date: 20170207
  Serious: Yes (Other)
  Sender: FDA-Public Use
  Company Number: JP-MYLANLABS-2016M1056110

PATIENT

DRUGS (3)
  1. TRASTUZUMAB [Suspect]
     Active Substance: TRASTUZUMAB
     Dosage: 6 MG/KG ON DAY 1 OF THE SECOND AND SUBSEQUENT 21 DAY CYCLES
     Route: 050
  2. TRASTUZUMAB [Suspect]
     Active Substance: TRASTUZUMAB
     Indication: BREAST CANCER STAGE III
     Dosage: 8 MG/KG AS A LOADING DOSE, FOLLOWED BY 6 MG/KG INFUSION
     Route: 050
  3. PACLITAXEL. [Suspect]
     Active Substance: PACLITAXEL
     Indication: BREAST CANCER STAGE III
     Route: 065

REACTIONS (10)
  - Leukopenia [Unknown]
  - Hypertriglyceridaemia [Unknown]
  - Neutropenia [Unknown]
  - Stomatitis [Unknown]
  - Spondylolisthesis [Unknown]
  - Lymphopenia [Unknown]
  - Pyrexia [Unknown]
  - Interstitial lung disease [Unknown]
  - Anaemia [Unknown]
  - Febrile neutropenia [Unknown]
